FAERS Safety Report 24269215 (Version 1)
Quarter: 2024Q3

REPORT INFORMATION
  Report Type: Spontaneous
  Country: FR (occurrence: FR)
  Receive Date: 20240830
  Receipt Date: 20240830
  Transmission Date: 20241016
  Serious: Yes (Hospitalization)
  Sender: FRESENIUS KABI
  Company Number: FR-FreseniusKabi-FK202413063

PATIENT
  Age: 61 Year
  Sex: Female

DRUGS (5)
  1. PROPOFOL [Suspect]
     Active Substance: PROPOFOL
     Indication: Sedation
     Dosage: DOSE-300 MG/H
  2. SUFENTANIL [Concomitant]
     Active Substance: SUFENTANIL
     Indication: Sedation
     Dosage: DOSE-300 MG/H
  3. EPINEPHRINE [Concomitant]
     Active Substance: EPINEPHRINE
     Indication: Cardio-respiratory arrest
  4. AMIODARONE [Concomitant]
     Active Substance: AMIODARONE
     Indication: Cardio-respiratory arrest
  5. NOREPINEPHRINE [Concomitant]
     Active Substance: NOREPINEPHRINE\NOREPINEPHRINE BITARTRATE
     Indication: Blood pressure management
     Dosage: DOSE-3.75 MG/H

REACTIONS (1)
  - Chromaturia [Recovered/Resolved]
